FAERS Safety Report 8213381-8 (Version None)
Quarter: 2012Q1

REPORT INFORMATION
  Report Type: 
  Country: None (occurrence: None)
  Receive Date: 20120315
  Receipt Date: 20120229
  Transmission Date: 20120608
  Serious: Yes (Other)
  Sender: FDA-Public Use
  Company Number: CHPA2012US004248

PATIENT
  Sex: Male

DRUGS (3)
  1. EXCEDRIN EXTRA STRENGTH TABLETS [Suspect]
     Dosage: 8 DF IN AN HOUR
     Route: 048
     Dates: start: 19980101, end: 19980101
  2. NYQUIL [Concomitant]
     Dosage: UNK
  3. EXCEDRIN EXTRA STRENGTH TABLETS [Suspect]
     Indication: BACK DISORDER
     Dosage: 2-4 DF, QD
     Route: 048
     Dates: start: 19670101

REACTIONS (12)
  - OFF LABEL USE [None]
  - MYOCARDIAL INFARCTION [None]
  - MALAISE [None]
  - BLINDNESS [None]
  - NASOPHARYNGITIS [None]
  - DRUG INEFFECTIVE [None]
  - LOSS OF CONTROL OF LEGS [None]
  - PULMONARY CONGESTION [None]
  - INCORRECT DRUG ADMINISTRATION DURATION [None]
  - INCORRECT DOSE ADMINISTERED [None]
  - INTERVERTEBRAL DISC PROTRUSION [None]
  - BACK DISORDER [None]
